FAERS Safety Report 16060699 (Version 1)
Quarter: 2019Q1

REPORT INFORMATION
  Report Type: Spontaneous
  Country: GB (occurrence: GB)
  Receive Date: 20190312
  Receipt Date: 20190312
  Transmission Date: 20190418
  Serious: Yes (Disabling)
  Sender: FDA-Public Use
  Company Number: GB-ACCORD-112017

PATIENT
  Age: 51 Year
  Sex: Male
  Weight: 55 kg

DRUGS (6)
  1. CLARITHROMYCIN. [Concomitant]
     Active Substance: CLARITHROMYCIN
     Dates: start: 20180717, end: 20180722
  2. JEXT [Concomitant]
     Dosage: USE AS DIRECTED
     Dates: start: 20160201
  3. THIAMINE. [Concomitant]
     Active Substance: THIAMINE
     Dates: start: 20150914
  4. SERTRALINE [Suspect]
     Active Substance: SERTRALINE HYDROCHLORIDE
     Indication: PRODUCT USED FOR UNKNOWN INDICATION
     Dates: start: 20181001
  5. VENTOLIN [Concomitant]
     Active Substance: ALBUTEROL SULFATE
     Dosage: PUFFS
     Dates: start: 20121024
  6. THIAMINE. [Concomitant]
     Active Substance: THIAMINE
     Dosage: TAKE 1 OR 2 3 TIMES/DAY
     Dates: start: 20150914

REACTIONS (1)
  - Hallucination, visual [Recovered/Resolved]

NARRATIVE: CASE EVENT DATE: 20181001
